FAERS Safety Report 8934246 (Version 1)
Quarter: 2012Q4

REPORT INFORMATION
  Report Type: 
  Country: FR (occurrence: FR)
  Receive Date: 20121129
  Receipt Date: 20121129
  Transmission Date: 20130627
  Serious: Yes (Life-Threatening, Hospitalization)
  Sender: FDA-Public Use
  Company Number: PHHY2012FR109211

PATIENT
  Age: 85 Year
  Sex: Female

DRUGS (6)
  1. VOLTARENE [Suspect]
     Dosage: As needd
     Route: 048
     Dates: start: 201208
  2. SPIRONOLACTONE [Suspect]
     Dosage: 50 mg, QD
     Route: 048
     Dates: start: 2008, end: 20120907
  3. PERINDOPRIL [Suspect]
     Dosage: UNK UKN, UNK
     Route: 048
     Dates: start: 2010, end: 20120907
  4. HEMIGOXINE NATIVELLE [Suspect]
     Dosage: 0.125 mg, QD
     Route: 048
     Dates: start: 201204, end: 20120906
  5. BISOPROLOL [Concomitant]
     Dosage: 10 mg, daily
     Dates: start: 2010
  6. PREVISCAN [Concomitant]
     Dosage: 20 mg, UNK
     Route: 048
     Dates: start: 2010

REACTIONS (10)
  - Cardiogenic shock [Recovered/Resolved]
  - Altered state of consciousness [Recovered/Resolved]
  - Cardiac arrest [Recovered/Resolved]
  - Bradycardia [Recovered/Resolved]
  - Renal failure acute [Recovered/Resolved]
  - Hyperkalaemia [Recovered/Resolved]
  - Overdose [Recovered/Resolved]
  - Cardioactive drug level increased [Recovered/Resolved]
  - Weight decreased [Unknown]
  - Oedema [Recovered/Resolved]
